FAERS Safety Report 4280101-1 (Version None)
Quarter: 2004Q1

REPORT INFORMATION
  Report Type: 
  Country: None (occurrence: None)
  Receive Date: 20040126
  Receipt Date: 20040113
  Transmission Date: 20041129
  Serious: Yes (Hospitalization)
  Sender: FDA-Public Use
  Company Number: 2004002311

PATIENT
  Age: 59 Year
  Sex: Female
  Weight: 70 kg

DRUGS (5)
  1. AMLODIPINE [Suspect]
     Indication: HYPERTENSION
     Dosage: 5 MG (DAILY); ORAL
     Route: 048
  2. PAROXETINE HCL [Suspect]
     Indication: DEPRESSION
     Dosage: 20 MG (DAILY), ORAL
     Route: 048
  3. GINKGO BILOBA EXTRACT (GINKGO BILOBA EXTRACT) [Suspect]
     Indication: MENIERE'S DISEASE
     Dosage: 120 MG (TID); ORAL
     Route: 048
  4. PANTOPRAZOLE [Concomitant]
  5. TOPAAL (MAGNESIUM CARBONATE, SILICA GEL, ALGINIC ACID, ALUMINIUM HYDRO [Concomitant]

REACTIONS (5)
  - ASTHENIA [None]
  - BLOOD CREATINE PHOSPHOKINASE INCREASED [None]
  - CONDITION AGGRAVATED [None]
  - MUSCULAR WEAKNESS [None]
  - MYOPATHY [None]
